FAERS Safety Report 5829033-5 (Version None)
Quarter: 2008Q3

REPORT INFORMATION
  Report Type: 
  Country: None (occurrence: None)
  Receive Date: 20080731
  Receipt Date: 20070924
  Transmission Date: 20090109
  Serious: No
  Sender: FDA-Public Use
  Company Number: US-BRISTOL-MYERS SQUIBB COMPANY-13711460

PATIENT
  Sex: Male

DRUGS (2)
  1. TEQUIN [Suspect]
     Indication: ANTIBIOTIC THERAPY
     Dosage: FOR 10 DAYS.
     Dates: start: 20060123
  2. TEQUIN [Suspect]
     Dates: start: 20060223

REACTIONS (1)
  - DIABETES MELLITUS [None]
